FAERS Safety Report 10581542 (Version 1)
Quarter: 2014Q4

REPORT INFORMATION
  Report Type: Spontaneous
  Country: US (occurrence: None)
  Receive Date: 20141110
  Receipt Date: 20141110
  Transmission Date: 20150529
  Serious: Yes (Hospitalization)
  Sender: FDA-Public Use
  Company Number: NSR_01663_2014

PATIENT
  Age: 35 Year
  Sex: Female

DRUGS (2)
  1. BACLOFEN. [Suspect]
     Active Substance: BACLOFEN
     Indication: PRODUCT USED FOR UNKNOWN INDICATION
     Dosage: NOT THE PRESCRIBE AMOUNT
  2. ACETAMINOPHEN. [Suspect]
     Active Substance: ACETAMINOPHEN
     Indication: PRODUCT USED FOR UNKNOWN INDICATION

REACTIONS (11)
  - Overdose [None]
  - Aspartate aminotransferase increased [None]
  - Blood magnesium decreased [None]
  - Toxic encephalopathy [None]
  - Sinus bradycardia [None]
  - Tremor [None]
  - Hypothermia [None]
  - Alanine aminotransferase increased [None]
  - Loss of consciousness [None]
  - No therapeutic response [None]
  - Myoclonus [None]
